FAERS Safety Report 23933863 (Version 1)
Quarter: 2024Q2

REPORT INFORMATION
  Report Type: Report from Study
  Country: BR (occurrence: BR)
  Receive Date: 20240603
  Receipt Date: 20240603
  Transmission Date: 20240716
  Serious: Yes (Other)
  Sender: FDA-Public Use
  Company Number: BR-TEVA-VS-3203786

PATIENT
  Age: 42 Year
  Sex: Female

DRUGS (1)
  1. COPAXONE [Suspect]
     Active Substance: GLATIRAMER ACETATE
     Indication: Multiple sclerosis
     Dosage: TIME INTERVAL: 0.33333333 WEEKS
     Route: 065
     Dates: start: 20191217

REACTIONS (12)
  - Epilepsy [Recovered/Resolved]
  - Muscle contracture [Recovered/Resolved]
  - Injection site discolouration [Not Recovered/Not Resolved]
  - Feeling hot [Recovered/Resolved]
  - Erythema [Recovered/Resolved]
  - Tachycardia [Recovered/Resolved]
  - Dyspnoea [Recovered/Resolved]
  - Deformity [Recovered/Resolved]
  - Injection site pain [Recovered/Resolved]
  - Injection site vesicles [Not Recovered/Not Resolved]
  - Feeling cold [Recovered/Resolved]
  - Injection site necrosis [Unknown]

NARRATIVE: CASE EVENT DATE: 20240501
